FAERS Safety Report 7000299-1 (Version None)
Quarter: 2010Q3

REPORT INFORMATION
  Report Type: 
  Country: None (occurrence: None)
  Receive Date: 20100920
  Receipt Date: 20100526
  Transmission Date: 20110219
  Serious: No
  Sender: FDA-Public Use
  Company Number: US-ASTRAZENECA-2010SE23628

PATIENT
  Age: 47 Year
  Sex: Female
  Weight: 77.1 kg

DRUGS (7)
  1. SEROQUEL [Suspect]
     Indication: INSOMNIA
     Route: 048
     Dates: start: 20090101
  2. SEROQUEL [Suspect]
     Indication: APPETITE DISORDER
     Route: 048
     Dates: start: 20090101
  3. SEROQUEL [Suspect]
     Route: 048
     Dates: start: 20090101
  4. SEROQUEL [Suspect]
     Route: 048
     Dates: start: 20090101
  5. AMBIEN [Concomitant]
  6. CYMBALTA [Concomitant]
  7. ATIVAN [Concomitant]

REACTIONS (7)
  - APHAGIA [None]
  - DECREASED APPETITE [None]
  - DRUG DOSE OMISSION [None]
  - HYPERHIDROSIS [None]
  - INSOMNIA [None]
  - MALAISE [None]
  - SOMNOLENCE [None]
